FAERS Safety Report 10047836 (Version 1)
Quarter: 2014Q1

REPORT INFORMATION
  Report Type: Spontaneous
  Country: BR (occurrence: BR)
  Receive Date: 20140331
  Receipt Date: 20140331
  Transmission Date: 20141002
  Serious: Yes (Death)
  Sender: FDA-Public Use
  Company Number: BR-ALEXION PHARMACEUTICALS INC.-A201400945

PATIENT
  Sex: 0

DRUGS (5)
  1. SOLIRIS 300MG [Suspect]
     Indication: HAEMOLYTIC URAEMIC SYNDROME
     Dosage: 300 MG, Q3W
     Route: 042
     Dates: start: 20140218, end: 20140225
  2. CASTER [Concomitant]
     Indication: INFECTION
     Dosage: UNK
     Route: 065
     Dates: start: 20140307
  3. ZYVOX [Concomitant]
     Indication: SEPSIS
     Dosage: UNKNOWN
     Route: 065
  4. CEFEPIME [Concomitant]
     Indication: SEPSIS
     Dosage: UNKNOWN
     Route: 065
  5. GENTAMICIN [Concomitant]
     Indication: SEPSIS

REACTIONS (2)
  - Pseudomonal sepsis [Fatal]
  - Device related infection [Unknown]
